FAERS Safety Report 13579383 (Version 5)
Quarter: 2020Q2

REPORT INFORMATION
  Report Type: Report from Study
  Country: BE (occurrence: BE)
  Receive Date: 20170525
  Receipt Date: 20200526
  Transmission Date: 20200713
  Serious: Yes (Hospitalization)
  Sender: FDA-Public Use
  Company Number: BE-ROCHE-1912741

PATIENT
  Age: 78 Year
  Sex: Male

DRUGS (4)
  1. FOLINIC ACID [Suspect]
     Active Substance: LEUCOVORIN
     Indication: COLORECTAL CANCER METASTATIC
     Route: 042
     Dates: start: 20170315
  2. 5-FLUOROURACIL [FLUOROURACIL] [Suspect]
     Active Substance: FLUOROURACIL
     Indication: COLORECTAL CANCER METASTATIC
     Dosage: DATE OF MOST RECENT DOSE (2852 MG) ADMINISTERED PRIOR TO AE ONSET: 15/MAR/2017
     Route: 042
     Dates: start: 20170315
  3. OXALIPLATIN. [Suspect]
     Active Substance: OXALIPLATIN
     Indication: COLORECTAL CANCER METASTATIC
     Dosage: DATE OF MOST RECENT DOSE (101 MG) ADMINISTERED PRIOR TO AE ONSET: 15/MAR/2017
     Route: 042
     Dates: start: 20170315
  4. BEVACIZUMAB. [Suspect]
     Active Substance: BEVACIZUMAB
     Indication: COLORECTAL CANCER METASTATIC
     Dosage: DATE OF MOST RECENT DOSE (385 MG) ADMINISTERED PRIOR TO AE ONSET: 26/APR/2017
     Route: 042
     Dates: start: 20170315

REACTIONS (4)
  - Pyrexia [Recovered/Resolved]
  - Acute coronary syndrome [Recovered/Resolved]
  - Malignant pleural effusion [Not Recovered/Not Resolved]
  - Dry mouth [Not Recovered/Not Resolved]

NARRATIVE: CASE EVENT DATE: 20170326
